FAERS Safety Report 7585430-1 (Version None)
Quarter: 2011Q3

REPORT INFORMATION
  Report Type: 
  Country: None (occurrence: None)
  Receive Date: 20110701
  Receipt Date: 20110617
  Transmission Date: 20111222
  Serious: Yes (Other)
  Sender: FDA-Public Use
  Company Number: US-BAYER-201030376NA

PATIENT
  Age: 21 Year
  Sex: Female
  Weight: 111 kg

DRUGS (9)
  1. VICODIN [Concomitant]
  2. PROMETHAZINE [Concomitant]
  3. MINOCYCLINE HCL [Concomitant]
     Dosage: 100 MG, BID
     Route: 048
     Dates: start: 20070712
  4. YAZ [Suspect]
     Indication: ACNE
  5. NORCO [Concomitant]
     Indication: PAIN
     Dosage: UNK
  6. SIMETHICONE [Concomitant]
  7. MACROBID [Concomitant]
     Dosage: 100 MG, BID
     Dates: start: 20090202
  8. MOTRIN [Concomitant]
  9. YAZ [Suspect]
     Indication: CONTRACEPTION
     Dosage: UNK UNK, UNK
     Route: 048
     Dates: start: 20070901, end: 20090901

REACTIONS (3)
  - BILE DUCT OBSTRUCTION [None]
  - CHOLELITHIASIS [None]
  - CHOLECYSTITIS CHRONIC [None]
